FAERS Safety Report 24712042 (Version 2)
Quarter: 2024Q4

REPORT INFORMATION
  Report Type: Spontaneous
  Country: CA (occurrence: CA)
  Receive Date: 20241209
  Receipt Date: 20241230
  Transmission Date: 20250114
  Serious: No
  Sender: MYLAN
  Company Number: CA-MYLANLABS-2024M1109449

PATIENT
  Sex: Female

DRUGS (3)
  1. REVATIO [Suspect]
     Active Substance: SILDENAFIL CITRATE
     Indication: Systemic scleroderma
     Dosage: UNK
     Route: 048
  2. REVATIO [Suspect]
     Active Substance: SILDENAFIL CITRATE
     Indication: Extremity necrosis
     Dosage: 50 MILLIGRAM, TID (THREE TIMES A DAY)
     Route: 048
  3. REVATIO [Suspect]
     Active Substance: SILDENAFIL CITRATE
     Indication: Amputation

REACTIONS (1)
  - Off label use [Unknown]
